FAERS Safety Report 6613820-X (Version None)
Quarter: 2010Q1

REPORT INFORMATION
  Report Type: 
  Country: None (occurrence: None)
  Receive Date: 20100225
  Receipt Date: 20100222
  Transmission Date: 20100710
  Serious: Yes (Hospitalization)
  Sender: FDA-Public Use
  Company Number: SP02702

PATIENT
  Age: 77 Year
  Sex: Male

DRUGS (8)
  1. VISICOL [Suspect]
     Indication: BOWEL PREPARATION
     Dosage: (50 GM),ORAL
     Route: 048
     Dates: start: 20091201, end: 20091201
  2. AMLODIPINE [Concomitant]
  3. LEVOTHYROXINE SODIUM [Concomitant]
  4. ATORVASTATIN CALCIUM [Concomitant]
  5. VALSARTAN [Concomitant]
  6. BICALUTAMIDE [Concomitant]
  7. TAMSULOSIN HCL [Concomitant]
  8. LEUPRORELIN ACETATE [Concomitant]

REACTIONS (7)
  - ANAEMIA [None]
  - DYSPNOEA [None]
  - FACE OEDEMA [None]
  - FAECES DISCOLOURED [None]
  - NEPHROCALCINOSIS [None]
  - NEPHROPATHY [None]
  - RENAL FAILURE ACUTE [None]
